FAERS Safety Report 17141413 (Version 1)
Quarter: 2019Q4

REPORT INFORMATION
  Report Type: Report from Study
  Country: US (occurrence: US)
  Receive Date: 20191211
  Receipt Date: 20191211
  Transmission Date: 20200122
  Serious: Yes (Death, Hospitalization)
  Sender: FDA-Public Use
  Company Number: US-MYLANLABS-2019M1122529

PATIENT
  Age: 27 Year
  Sex: Male

DRUGS (2)
  1. DOXYLAMINE [Suspect]
     Active Substance: DOXYLAMINE
     Indication: PRODUCT USED FOR UNKNOWN INDICATION
     Dosage: UNK
     Route: 065
  2. LOPERAMIDE [Suspect]
     Active Substance: LOPERAMIDE
     Indication: PRODUCT USED FOR UNKNOWN INDICATION
     Dosage: UNK
     Route: 065

REACTIONS (9)
  - Atrioventricular block [Fatal]
  - Bradycardia [Fatal]
  - Ventricular arrhythmia [Fatal]
  - Electrocardiogram QRS complex prolonged [Fatal]
  - Hypotension [Fatal]
  - Toxicity to various agents [Fatal]
  - Respiratory depression [Fatal]
  - Tachycardia [Fatal]
  - Electrocardiogram QT prolonged [Fatal]
